FAERS Safety Report 12403535 (Version 2)
Quarter: 2016Q2

REPORT INFORMATION
  Report Type: Report from Study
  Country: BR (occurrence: BR)
  Receive Date: 20160525
  Receipt Date: 20160613
  Transmission Date: 20160815
  Serious: Yes (Other)
  Sender: FDA-Public Use
  Company Number: PHHY2016BR070643

PATIENT
  Sex: Female
  Weight: 76 kg

DRUGS (8)
  1. CITALOPRAM [Concomitant]
     Active Substance: CITALOPRAM HYDROBROMIDE
     Indication: DEPRESSION
     Dosage: 1 DF, QD
     Route: 048
     Dates: start: 20150410
  2. ALPRAZOLAM. [Concomitant]
     Active Substance: ALPRAZOLAM
     Indication: ANXIETY
     Dosage: 1 DF, QD
     Route: 048
     Dates: start: 20150202
  3. DONAREN [Concomitant]
     Active Substance: TRAZODONE HYDROCHLORIDE
     Indication: INSOMNIA
  4. ALPRAZOLAM. [Concomitant]
     Active Substance: ALPRAZOLAM
     Indication: INSOMNIA
  5. DONAREN [Concomitant]
     Active Substance: TRAZODONE HYDROCHLORIDE
     Indication: ANXIETY
     Dosage: 1 DF, QD
     Route: 048
  6. FORASEQ [Suspect]
     Active Substance: BUDESONIDE\FORMOTEROL FUMARATE
     Indication: LUNG DISORDER
     Dosage: 1 DF (BUDESONIDE 400 MCG, FORMOTEROL FUMARATE 12 MCG), BID (IN THE MORNING AND AT NIGHT)
     Route: 055
     Dates: start: 201503
  7. LOSARTAN. [Concomitant]
     Active Substance: LOSARTAN
     Indication: HYPERTENSION
     Dosage: 2 DF, QD
     Route: 048
     Dates: start: 201502
  8. ATENSINA [Concomitant]
     Active Substance: CLONIDINE
     Indication: HYPERTENSION
     Dosage: 2 DF, QD
     Route: 048
     Dates: start: 201602

REACTIONS (14)
  - Head discomfort [Unknown]
  - Confusional state [Unknown]
  - Anxiety [Recovering/Resolving]
  - Product use issue [Unknown]
  - Aggression [Recovering/Resolving]
  - Dyspnoea [Recovering/Resolving]
  - Panic reaction [Recovering/Resolving]
  - Choking [Recovering/Resolving]
  - Hypoacusis [Unknown]
  - Tremor [Recovering/Resolving]
  - Expired product administered [Unknown]
  - Syncope [Recovering/Resolving]
  - Visual acuity reduced [Unknown]
  - Drug ineffective [Unknown]
